FAERS Safety Report 14511171 (Version 1)
Quarter: 2018Q1

REPORT INFORMATION
  Report Type: Spontaneous
  Country: FR (occurrence: FR)
  Receive Date: 20180209
  Receipt Date: 20180209
  Transmission Date: 20180509
  Serious: Yes (Other)
  Sender: FDA-Public Use
  Company Number: FR-VELOXIS PHARMACEUTICALS-2041696

PATIENT
  Age: 62 Year
  Sex: Male
  Weight: 95 kg

DRUGS (6)
  1. SOLUPRED /00016201/ [Concomitant]
     Active Substance: PREDNISOLONE
  2. DELURSAN [Concomitant]
     Active Substance: URSODIOL
  3. SOFOSBUVIR [Suspect]
     Active Substance: SOFOSBUVIR
  4. DACLATASVIR DIHYDROCHLORIDE [Suspect]
     Active Substance: DACLATASVIR DIHYDROCHLORIDE
  5. ENVARSUS XR [Suspect]
     Active Substance: TACROLIMUS
     Indication: IMMUNOSUPPRESSANT DRUG THERAPY
  6. CELLCEPT [Concomitant]
     Active Substance: MYCOPHENOLATE MOFETIL\MYCOPHENOLATE MOFETIL HYDROCHLORIDE

REACTIONS (5)
  - Drug ineffective [Unknown]
  - Treatment failure [Unknown]
  - Genotype drug resistance test positive [Unknown]
  - Hepatitis C [Unknown]
  - Drug interaction [Unknown]
